FAERS Safety Report 13691968 (Version 2)
Quarter: 2018Q1

REPORT INFORMATION
  Report Type: Report from Study
  Country: CA (occurrence: CA)
  Receive Date: 20170626
  Receipt Date: 20180131
  Transmission Date: 20180508
  Serious: Yes (Other)
  Sender: FDA-Public Use
  Company Number: CA-MYLANLABS-2017M1015214

PATIENT
  Sex: Male

DRUGS (3)
  1. QUETIAPINE. [Concomitant]
     Active Substance: QUETIAPINE
     Indication: PRODUCT USED FOR UNKNOWN INDICATION
     Dosage: 100 G, HS
     Route: 048
  2. CLOZAPINE. [Suspect]
     Active Substance: CLOZAPINE
     Indication: PRODUCT USED FOR UNKNOWN INDICATION
     Dosage: UNK
     Dates: start: 201612, end: 20170302
  3. FLUPHENAZINE [Concomitant]
     Active Substance: FLUPHENAZINE
     Indication: PRODUCT USED FOR UNKNOWN INDICATION
     Dosage: 5 G, BID

REACTIONS (4)
  - Sinus tachycardia [Unknown]
  - White blood cell count increased [Unknown]
  - Treatment failure [Unknown]
  - Lymphadenopathy [Unknown]
